FAERS Safety Report 9743247 (Version 1)
Quarter: 2013Q4

REPORT INFORMATION
  Report Type: Spontaneous
  Country: US (occurrence: US)
  Receive Date: 20131210
  Receipt Date: 20131210
  Transmission Date: 20140711
  Serious: No
  Sender: FDA-Public Use
  Company Number: US-GILEAD-2009-0025186

PATIENT
  Sex: Male
  Weight: 114.3 kg

DRUGS (8)
  1. LETAIRIS [Suspect]
     Indication: PULMONARY ARTERIAL HYPERTENSION
     Route: 048
     Dates: start: 20090915
  2. WARFARIN [Concomitant]
  3. SPIRONOLACTONE [Concomitant]
  4. DIGOXIN [Concomitant]
  5. BUMETANIDE [Concomitant]
  6. LIPITOR [Concomitant]
  7. GLIPIZIDE [Concomitant]
  8. POTASSIUM CHLORIDE [Concomitant]

REACTIONS (2)
  - Balance disorder [Unknown]
  - Headache [Unknown]
